FAERS Safety Report 8933043 (Version 1)
Quarter: 2012Q4

REPORT INFORMATION
  Report Type: Spontaneous
  Country: US (occurrence: None)
  Receive Date: 20121127
  Receipt Date: 20121127
  Transmission Date: 20130627
  Serious: Yes (Death)
  Sender: FDA-Public Use
  Company Number: None

PATIENT
  Age: 47 Year
  Sex: Female

DRUGS (10)
  1. LETAIRIS [Suspect]
     Indication: PULMONARY HYPERTENSION
     Route: 048
     Dates: start: 200605, end: 201211
  2. AMBRISENTAN [Concomitant]
  3. SILDENAFIL [Concomitant]
  4. METHOTREXATE [Concomitant]
  5. AMLODIPINE [Concomitant]
  6. METOLAZONE [Concomitant]
  7. FUROSEMIDE [Concomitant]
  8. KCL [Concomitant]
  9. OMEPRAZOLE [Concomitant]
  10. FOLIC ACID [Concomitant]

REACTIONS (8)
  - Subdural haematoma [None]
  - International normalised ratio increased [None]
  - Pulseless electrical activity [None]
  - Cardiac arrest [None]
  - Right ventricular failure [None]
  - Blood pressure immeasurable [None]
  - Headache [None]
  - Speech disorder [None]
